FAERS Safety Report 5825695-7 (Version None)
Quarter: 2008Q2

REPORT INFORMATION
  Report Type: 
  Country: None (occurrence: None)
  Receive Date: 20080601
  Receipt Date: 20080227
  Transmission Date: 20081010
  Serious: No
  Sender: FDA-Public Use
  Company Number: US200802005321

PATIENT
  Age: 60 Year
  Sex: Female
  Weight: 85.7 kg

DRUGS (5)
  1. BYETTA [Suspect]
     Indication: TYPE 2 DIABETES MELLITUS
     Dosage: 5 UG, 2/D, SUBCUTANEOUS
     Route: 058
     Dates: start: 20080220, end: 20080226
  2. NORTRIPTYLINE HCL [Concomitant]
  3. LISINOPRIL /USA/ (LISINOPRIL) [Concomitant]
  4. SYNTHROID [Concomitant]
  5. TOPAMAX [Concomitant]

REACTIONS (6)
  - BLOOD GLUCOSE INCREASED [None]
  - DECREASED APPETITE [None]
  - DYSPEPSIA [None]
  - NAUSEA [None]
  - VOMITING [None]
  - WEIGHT DECREASED [None]
